FAERS Safety Report 4691165-5 (Version None)
Quarter: 2005Q2

REPORT INFORMATION
  Report Type: 
  Country: None (occurrence: None)
  Receive Date: 20050615
  Receipt Date: 20050530
  Transmission Date: 20051028
  Serious: Yes (Hospitalization)
  Sender: FDA-Public Use
  Company Number: NL-ABBOTT-05P-114-0302093-00

PATIENT
  Sex: Female

DRUGS (8)
  1. DEPAKENE [Suspect]
     Indication: EPILEPSY
     Route: 048
  2. CLAVULIN [Interacting]
     Indication: DRUG USE FOR UNKNOWN INDICATION
     Route: 048
     Dates: start: 20050506, end: 20050514
  3. CLAVULIN [Interacting]
     Route: 048
     Dates: start: 20050301, end: 20050301
  4. PARACETAMOL [Concomitant]
     Indication: DRUG USE FOR UNKNOWN INDICATION
     Route: 048
  5. SOTALOL HCL [Concomitant]
     Indication: DRUG USE FOR UNKNOWN INDICATION
     Route: 065
  6. THIAMAZOLE [Concomitant]
     Indication: DRUG USE FOR UNKNOWN INDICATION
     Route: 048
  7. MAGNESIUM HYDROXIDE TAB [Concomitant]
     Indication: DRUG USE FOR UNKNOWN INDICATION
     Route: 048
  8. PANTOPRAZOLE [Concomitant]
     Indication: DRUG USE FOR UNKNOWN INDICATION
     Route: 048

REACTIONS (3)
  - CONDITION AGGRAVATED [None]
  - DRUG INTERACTION [None]
  - EPILEPSY [None]
